FAERS Safety Report 7653217-7 (Version None)
Quarter: 2011Q3

REPORT INFORMATION
  Report Type: 
  Country: None (occurrence: None)
  Receive Date: 20110803
  Receipt Date: 20110718
  Transmission Date: 20111222
  Serious: No
  Sender: FDA-Public Use
  Company Number: US-BAYER-2011-063544

PATIENT
  Sex: Female

DRUGS (2)
  1. ALEVE (CAPLET) [Suspect]
     Indication: FIBROMYALGIA
     Dosage: UNK
     Route: 048
  2. IBUPROFEN [Concomitant]
     Indication: FIBROMYALGIA

REACTIONS (1)
  - FIBROMYALGIA [None]
